FAERS Safety Report 6521735-0 (Version None)
Quarter: 2009Q4

REPORT INFORMATION
  Report Type: 
  Country: None (occurrence: None)
  Receive Date: 20091230
  Receipt Date: 20091224
  Transmission Date: 20100525
  Serious: Yes (Other)
  Sender: FDA-Public Use
  Company Number: FR-B.I. PHARMACEUTICALS,INC./RIDGEFIELD-2009-FF-00884FF

PATIENT
  Sex: Male

DRUGS (2)
  1. MICARDIS HCT [Suspect]
     Dosage: 40 MG/12.5 MG
     Route: 048
     Dates: end: 20090901
  2. CRESTOR [Concomitant]
     Dosage: 10 MG
     Route: 048
     Dates: end: 20090901

REACTIONS (1)
  - LICHEN PLANUS [None]
